FAERS Safety Report 9397702 (Version 1)
Quarter: 2013Q3

REPORT INFORMATION
  Report Type: Report from Study
  Country: ZW (occurrence: ZW)
  Receive Date: 20130712
  Receipt Date: 20130712
  Transmission Date: 20140515
  Serious: Yes (Other)
  Sender: FDA-Public Use
  Company Number: ZW-009507513-1307ZWE001638

PATIENT
  Age: 33 Year
  Sex: Female

DRUGS (8)
  1. RALTEGRAVIR POTASSIUM [Suspect]
     Indication: HIV INFECTION
     Dosage: UNK
     Dates: start: 20100802, end: 20100805
  2. LOPINAVIR (+) RITONAVIR [Suspect]
     Indication: HIV INFECTION
     Dosage: UNK
     Dates: start: 20100802
  3. RITONAVIR [Suspect]
     Indication: HIV INFECTION
     Dosage: UNK
     Dates: start: 20100802, end: 20100805
  4. RIFAMPIN [Suspect]
     Indication: PULMONARY TUBERCULOSIS
     Dosage: UNK
     Dates: start: 20100708, end: 20100813
  5. ISONIAZID [Suspect]
     Indication: PULMONARY TUBERCULOSIS
     Dosage: UNK
     Dates: start: 20100708, end: 20110117
  6. ETHAMBUTOL HYDROCHLORIDE [Concomitant]
     Indication: PULMONARY TUBERCULOSIS
     Dosage: UNK
     Dates: start: 20100708, end: 20100908
  7. PYRAZINAMIDE [Concomitant]
     Indication: PULMONARY TUBERCULOSIS
     Dosage: UNK
     Dates: start: 20100708, end: 20100908
  8. SULFAMETHOXAZOLE (+) TRIMETHOPRIM [Concomitant]
     Dosage: UNK
     Dates: start: 20060315

REACTIONS (1)
  - Hepatotoxicity [Recovered/Resolved]
